FAERS Safety Report 8422074-3 (Version None)
Quarter: 2012Q2

REPORT INFORMATION
  Report Type: 
  Country: None (occurrence: None)
  Receive Date: 20120608
  Receipt Date: 20120529
  Transmission Date: 20120825
  Serious: Yes (Hospitalization, Other)
  Sender: FDA-Public Use
  Company Number: DK-PFIZER INC-2012131990

PATIENT
  Age: 74 Year
  Sex: Female
  Weight: 75 kg

DRUGS (6)
  1. LYRICA [Concomitant]
     Dosage: UNK
  2. NITROGLYCERIN [Concomitant]
     Dosage: UNK
  3. BRILINTA [Interacting]
     Indication: THROMBOSIS PROPHYLAXIS
     Dosage: UNK
     Route: 048
     Dates: start: 20120319, end: 20120101
  4. ATORVASTATIN CALCIUM [Suspect]
     Dosage: UNK
  5. CENTYL MED KALIUMKLORID [Concomitant]
     Indication: OEDEMA
     Dosage: UNK
  6. ASPIRIN [Interacting]
     Dosage: UNK

REACTIONS (5)
  - DIZZINESS [None]
  - HAEMATOMA [None]
  - DEMENTIA [None]
  - DRUG INTERACTION [None]
  - EPIDERMAL GROWTH FACTOR RECEPTOR DECREASED [None]
